FAERS Safety Report 16855827 (Version 1)
Quarter: 2019Q3

REPORT INFORMATION
  Report Type: Spontaneous
  Country: NO (occurrence: NO)
  Receive Date: 20190926
  Receipt Date: 20190926
  Transmission Date: 20191005
  Serious: Yes (Hospitalization, Other)
  Sender: FDA-Public Use
  Company Number: NO-TEVA-2019-NO-1112497

PATIENT
  Age: 37 Year
  Sex: Female
  Weight: 64 kg

DRUGS (1)
  1. VIVAL [Suspect]
     Active Substance: DIAZEPAM
     Indication: ANXIETY
     Dosage: THE DOSAGE WAS INCREASED OVER A LONGER PERIOD OF TIME AND THEN REDUCED OVER A YEAR FROM 20 MG, TO 5
     Route: 065
     Dates: start: 20180601, end: 20190705

REACTIONS (6)
  - Paranoia [Unknown]
  - Tremor [Recovered/Resolved with Sequelae]
  - Muscle twitching [Recovered/Resolved with Sequelae]
  - Phobia of driving [Unknown]
  - Panic attack [Recovered/Resolved with Sequelae]
  - Agoraphobia [Recovered/Resolved with Sequelae]

NARRATIVE: CASE EVENT DATE: 20180708
